FAERS Safety Report 15499310 (Version 1)
Quarter: 2018Q4

REPORT INFORMATION
  Report Type: Spontaneous
  Country: TW (occurrence: TW)
  Receive Date: 20181015
  Receipt Date: 20181015
  Transmission Date: 20190205
  Serious: Yes (Hospitalization, Other)
  Sender: FDA-Public Use
  Company Number: TW-GLAXOSMITHKLINE-TW2016200595

PATIENT
  Age: 33 Year
  Sex: Female

DRUGS (6)
  1. STROCAIN (OXETACAINE) [Concomitant]
     Indication: PRODUCT USED FOR UNKNOWN INDICATION
     Dosage: 5 MG, UNK
     Route: 065
  2. SENNOSIDE [Concomitant]
     Active Substance: SENNOSIDES
     Dosage: 20 MG, QHS
     Route: 065
     Dates: start: 20120903
  3. CEFUROXIME. [Concomitant]
     Active Substance: CEFUROXIME
     Dosage: 250 MG, BID
     Route: 065
     Dates: start: 20120902, end: 20120908
  4. DICLOFENAC [Suspect]
     Active Substance: DICLOFENAC
     Indication: PYREXIA
     Dosage: 25 MG, QID (PRN)
     Route: 065
     Dates: start: 20120902
  5. SENNOSIDE [Concomitant]
     Active Substance: SENNOSIDES
     Indication: PRODUCT USED FOR UNKNOWN INDICATION
     Dosage: 20 MG, QHS
     Route: 065
     Dates: start: 20120822, end: 20120829
  6. CEFUROXIME. [Concomitant]
     Active Substance: CEFUROXIME
     Indication: PRODUCT USED FOR UNKNOWN INDICATION
     Dosage: 250 MG, BID
     Route: 065
     Dates: start: 20120822, end: 20120829

REACTIONS (5)
  - Jaundice [Unknown]
  - Abdominal pain [Unknown]
  - Haemolytic anaemia [Unknown]
  - Pallor [Unknown]
  - Fatigue [Unknown]
